FAERS Safety Report 4461670-5 (Version None)
Quarter: 2004Q3

REPORT INFORMATION
  Report Type: 
  Country: None (occurrence: None)
  Receive Date: 20040920
  Receipt Date: 20040915
  Transmission Date: 20050211
  Serious: Yes (Life-Threatening)
  Sender: FDA-Public Use
  Company Number: 200409130

PATIENT
  Age: 56 Year
  Sex: Male

DRUGS (4)
  1. ALBUMINAR-5% (ALBUMIN NORMAL HUMAN SERUM) (ZLB BEHRING) [Suspect]
     Indication: HYPOALBUMINAEMIA
     Dosage: 500 MG DAILY IV
     Route: 042
     Dates: start: 20040803, end: 20040803
  2. RINGER'S [Concomitant]
  3. MORPHINE HYDROCHLORIDE [Concomitant]
  4. MAP [Concomitant]

REACTIONS (7)
  - ANAPHYLACTOID SHOCK [None]
  - ANTIBODY TEST POSITIVE [None]
  - BLOOD PRESSURE DECREASED [None]
  - HAPTOGLOBIN DECREASED [None]
  - RESPIRATORY FAILURE [None]
  - VENTRICULAR FIBRILLATION [None]
  - VENTRICULAR TACHYCARDIA [None]
